FAERS Safety Report 4390834-4 (Version None)
Quarter: 2004Q3

REPORT INFORMATION
  Report Type: 
  Country: None (occurrence: None)
  Receive Date: 20040706
  Receipt Date: 20040706
  Transmission Date: 20050211
  Serious: Yes (Life-Threatening)
  Sender: FDA-Public Use
  Company Number: None

PATIENT
  Age: 47 Year
  Sex: Male
  Weight: 113.3993 kg

DRUGS (3)
  1. CELEXA [Suspect]
     Indication: DEPRESSION
     Dosage: 20 MG QAM ORAL
     Route: 048
     Dates: start: 20020708, end: 20020807
  2. IMITREX [Suspect]
     Indication: MIGRAINE
     Dosage: 100MG PRN X 1 ORAL
     Route: 048
     Dates: start: 19991109, end: 20020727
  3. ESGIC [Concomitant]

REACTIONS (6)
  - COMPULSIONS [None]
  - CONDITION AGGRAVATED [None]
  - CRYING [None]
  - DEPRESSION [None]
  - DRUG INEFFECTIVE [None]
  - SUICIDAL IDEATION [None]
